FAERS Safety Report 12144123 (Version 2)
Quarter: 2016Q1

REPORT INFORMATION
  Report Type: Spontaneous
  Country: ES (occurrence: ES)
  Receive Date: 20160304
  Receipt Date: 20160316
  Transmission Date: 20160526
  Serious: Yes (Death)
  Sender: FDA-Public Use
  Company Number: ES-IROKO PHARMACEUTICALS LLC-ES-I09001-16-00037

PATIENT
  Age: 55 Year
  Sex: Male

DRUGS (5)
  1. INDOCIN [Suspect]
     Active Substance: INDOMETHACIN\INDOMETHACIN SODIUM
     Indication: PRODUCT USED FOR UNKNOWN INDICATION
     Route: 048
     Dates: start: 20141101, end: 20141101
  2. TRAMADOL. [Suspect]
     Active Substance: TRAMADOL
     Indication: PRODUCT USED FOR UNKNOWN INDICATION
     Route: 048
     Dates: start: 20141101, end: 20141101
  3. ORFIDAL [Suspect]
     Active Substance: LORAZEPAM
     Indication: PRODUCT USED FOR UNKNOWN INDICATION
     Route: 048
     Dates: start: 20141101, end: 20141101
  4. LYRICA [Suspect]
     Active Substance: PREGABALIN
     Indication: PRODUCT USED FOR UNKNOWN INDICATION
     Route: 048
     Dates: start: 20141101, end: 20141101
  5. STILINOX [Suspect]
     Active Substance: ZOLPIDEM TARTRATE
     Indication: PRODUCT USED FOR UNKNOWN INDICATION
     Route: 048
     Dates: start: 20141101, end: 20141101

REACTIONS (15)
  - Rhabdomyolysis [Fatal]
  - Coagulopathy [Fatal]
  - Toxicity to various agents [Fatal]
  - Acute kidney injury [None]
  - Depressed level of consciousness [Fatal]
  - Dehydration [None]
  - Enteritis [None]
  - Completed suicide [Fatal]
  - Multiple organ dysfunction syndrome [Fatal]
  - Septic shock [Fatal]
  - Respiratory moniliasis [None]
  - Klebsiella test positive [None]
  - Colitis [None]
  - Pneumonia aspiration [None]
  - Pancytopenia [Fatal]

NARRATIVE: CASE EVENT DATE: 201411
